FAERS Safety Report 23591525 (Version 1)
Quarter: 2024Q1

REPORT INFORMATION
  Report Type: Spontaneous
  Country: US (occurrence: None)
  Receive Date: 20240301
  Receipt Date: 20240301
  Transmission Date: 20240410
  Serious: No
  Sender: FDA-Public Use
  Company Number: None

PATIENT
  Age: 54 Year
  Sex: Female
  Weight: 64.8 kg

DRUGS (1)
  1. ALENDRONATE SODIUM [Suspect]
     Active Substance: ALENDRONATE SODIUM
     Indication: Bone density abnormal
     Dosage: OTHER QUANTITY : 4 TABLET(S);?OTHER FREQUENCY : 1 AN WEEK;?
     Route: 048
     Dates: start: 20240219, end: 20240301

REACTIONS (10)
  - Arthralgia [None]
  - Pain [None]
  - Gait disturbance [None]
  - Insomnia [None]
  - Flatulence [None]
  - Gastrointestinal disorder [None]
  - Confusional state [None]
  - Chest discomfort [None]
  - Asthenia [None]
  - Pruritus [None]

NARRATIVE: CASE EVENT DATE: 20240219
